FAERS Safety Report 9165234 (Version 1)
Quarter: 2013Q1

REPORT INFORMATION
  Report Type: Spontaneous
  Country: US (occurrence: None)
  Receive Date: 20130314
  Receipt Date: 20130314
  Transmission Date: 20140127
  Serious: No
  Sender: FDA-Public Use
  Company Number: None

PATIENT
  Age: 73 Year
  Sex: Male

DRUGS (2)
  1. ERIVEDGE 150MG GENENTECH [Suspect]
     Indication: BASAL CELL CARCINOMA
     Route: 048
     Dates: start: 20130123
  2. IBUPROFEN 200 MG 604 [Concomitant]

REACTIONS (2)
  - Laboratory test abnormal [None]
  - Hepatic enzyme increased [None]
